FAERS Safety Report 9209427 (Version 1)
Quarter: 2013Q1

REPORT INFORMATION
  Report Type: Spontaneous
  Country: US (occurrence: None)
  Receive Date: 20120725
  Receipt Date: 20120725
  Transmission Date: 20140127
  Serious: Yes (Other)
  Sender: FDA-Public Use
  Company Number: 2011SP055587

PATIENT
  Age: 62 Year
  Sex: Female

DRUGS (1)
  1. REBETOL [Suspect]
     Indication: HEPATITIS C

REACTIONS (3)
  - Haemoglobin decreased [None]
  - Cough [None]
  - Accidental overdose [None]
